FAERS Safety Report 19088326 (Version 1)
Quarter: 2021Q2

REPORT INFORMATION
  Report Type: Spontaneous
  Country: US (occurrence: US)
  Receive Date: 20210402
  Receipt Date: 20210402
  Transmission Date: 20210717
  Serious: Yes (Disabling, Other)
  Sender: FDA-Public Use
  Company Number: None

PATIENT
  Age: 60 Year
  Sex: Female
  Weight: 76.66 kg

DRUGS (1)
  1. DIMETHYL FUMARATE DR 240MG [Suspect]
     Active Substance: DIMETHYL FUMARATE
     Indication: MULTIPLE SCLEROSIS
     Dosage: ?          QUANTITY:240 MG MILLIGRAM(S);?
     Route: 048
     Dates: start: 20201214, end: 20210303

REACTIONS (5)
  - Pyrexia [None]
  - Memory impairment [None]
  - Skin discolouration [None]
  - Fatigue [None]
  - Nail discolouration [None]

NARRATIVE: CASE EVENT DATE: 20210303
